FAERS Safety Report 6219829-2 (Version None)
Quarter: 2009Q2

REPORT INFORMATION
  Report Type: 
  Country: None (occurrence: None)
  Receive Date: 20090609
  Receipt Date: 20090601
  Transmission Date: 20091009
  Serious: Yes (Hospitalization)
  Sender: FDA-Public Use
  Company Number: US-GILEAD-2009-0022004

PATIENT
  Sex: Male
  Weight: 113.5 kg

DRUGS (9)
  1. LETAIRIS [Suspect]
     Indication: PULMONARY ARTERIAL HYPERTENSION
     Route: 048
     Dates: start: 20090113
  2. REVATIO [Concomitant]
  3. COUMADIN [Concomitant]
  4. BUMEX [Concomitant]
  5. AMIODARONE HCL [Concomitant]
  6. CARDURA [Concomitant]
  7. NORVASC [Concomitant]
  8. PROZAC [Concomitant]
  9. POTASSIUM CHLORIDE [Concomitant]

REACTIONS (4)
  - ATRIAL TACHYCARDIA [None]
  - BLOOD CREATININE INCREASED [None]
  - DYSPNOEA [None]
  - FLUID RETENTION [None]
